FAERS Safety Report 4718598-2 (Version None)
Quarter: 2005Q3

REPORT INFORMATION
  Report Type: 
  Country: None (occurrence: None)
  Receive Date: 20050720
  Receipt Date: 20050714
  Transmission Date: 20060218
  Serious: Yes (Other)
  Sender: FDA-Public Use
  Company Number: US-GLAXOSMITHKLINE-A0566538A

PATIENT
  Age: 27 Year
  Sex: Male

DRUGS (1)
  1. PAXIL [Suspect]
     Indication: DRUG USE FOR UNKNOWN INDICATION
     Route: 048
     Dates: start: 20000401

REACTIONS (14)
  - AMNESIA [None]
  - BLINDNESS [None]
  - CONVULSION [None]
  - DEREALISATION [None]
  - DRUG WITHDRAWAL SYNDROME [None]
  - EYE PAIN [None]
  - FATIGUE [None]
  - FEAR [None]
  - HYPERHIDROSIS [None]
  - HYPERTENSION [None]
  - INSOMNIA [None]
  - NERVOUSNESS [None]
  - PARAESTHESIA [None]
  - PARANOIA [None]
